FAERS Safety Report 6502404-X (Version None)
Quarter: 2009Q4

REPORT INFORMATION
  Report Type: 
  Country: None (occurrence: None)
  Receive Date: 20091216
  Receipt Date: 20091117
  Transmission Date: 20100525
  Serious: No
  Sender: FDA-Public Use
  Company Number: US-ABBOTT-09P-163-0609921-00

PATIENT
  Sex: Male
  Weight: 70.37 kg

DRUGS (4)
  1. TRILIPIX [Suspect]
     Indication: BLOOD TRIGLYCERIDES INCREASED
     Dates: start: 20091116
  2. TRILIPIX [Suspect]
     Indication: BLOOD CHOLESTEROL INCREASED
  3. METFORMIN HCL [Concomitant]
     Indication: DIABETES MELLITUS
     Dates: start: 20091116
  4. LISINOPRIL AND HYDROCHLOROTHIAZIDE [Concomitant]
     Indication: HYPERTENSION
     Dosage: 20/25 MG

REACTIONS (1)
  - BLOOD GLUCOSE INCREASED [None]
